FAERS Safety Report 12287909 (Version 1)
Quarter: 2016Q2

REPORT INFORMATION
  Report Type: Spontaneous
  Country: NL (occurrence: NL)
  Receive Date: 20160420
  Receipt Date: 20160420
  Transmission Date: 20160815
  Serious: Yes (Hospitalization)
  Sender: FDA-Public Use
  Company Number: NL-TEVA-652664ACC

PATIENT
  Age: 57 Year
  Sex: Female
  Weight: 58 kg

DRUGS (14)
  1. LOCOID CREME 1MG/G [Concomitant]
     Dosage: 1-2 TIMES DAILY; 1MG / G DOSAGE: 1 TO 2 TIMES A DAY
     Route: 003
     Dates: start: 20151207
  2. LANETTE I CREME [Concomitant]
     Dosage: 2-3 TIMES DAILY
     Route: 003
  3. HYDROXYZINE TABLET OMHULD  25MG [Concomitant]
     Dosage: 1-2 TIMES DAILY
     Route: 048
     Dates: start: 20151207
  4. IMURAN [Concomitant]
     Active Substance: AZATHIOPRINE
     Dosage: DOSE: 1 X DAILY 2 PIECE
  5. LANOXIN [Concomitant]
     Active Substance: DIGOXIN
     Dosage: .25 MILLIGRAM DAILY; 1 X DAILY 1 PIECE
     Route: 048
  6. ENBREL INJPDR FLACON 10MG+SOLVENS 1ML+TOEBEHOREN [Concomitant]
     Indication: RHEUMATOID ARTHRITIS
     Dosage: STRENGTH AND DOSE NOT KNOWN
     Route: 058
  7. IMURAN [Concomitant]
     Active Substance: AZATHIOPRINE
     Indication: RHEUMATOID ARTHRITIS
     Dosage: 125 MILLIGRAM DAILY; ONCE DAILY 2.5 PIECE
     Route: 048
     Dates: start: 201406
  8. GLICLAZIDE TABLET MGA 30MG [Concomitant]
     Dosage: 3 TIMES A DAY 1 PIECE
  9. IMURAN [Concomitant]
     Active Substance: AZATHIOPRINE
     Dosage: DOSE: 1 X DAILY 1 PIECE
  10. GLICLAZIDE TABLET MGA 30MG [Concomitant]
     Indication: DIABETES MELLITUS
     Dosage: 30 MILLIGRAM DAILY; ONCE DAILY ONE
     Route: 048
  11. CHLOORTALIDON TABLET 12,5MG [Concomitant]
     Dosage: 12.5 MILLIGRAM DAILY; ONCE DAILY TWO
     Route: 048
  12. SLOW K TABLET MGA 600MG [Concomitant]
     Dosage: 1200 MILLIGRAM DAILY; 1 X DAILY 2 PIECES
     Route: 048
  13. METFORMIN [Suspect]
     Active Substance: METFORMIN HYDROCHLORIDE
     Indication: TYPE 2 DIABETES MELLITUS
     Dosage: 1000 MILLIGRAM DAILY; 2 TIMES DAILY 1 PIECE (S)
     Route: 048
     Dates: start: 20151103, end: 20151202
  14. PROPRANOLOL [Concomitant]
     Active Substance: PROPRANOLOL\PROPRANOLOL HYDROCHLORIDE
     Dosage: 80 MILLIGRAM DAILY; 1 X DAILY 1 PIECE
     Route: 048

REACTIONS (1)
  - Cholestasis [Recovered/Resolved]

NARRATIVE: CASE EVENT DATE: 20151216
